FAERS Safety Report 8812457 (Version 1)
Quarter: 2012Q4

REPORT INFORMATION
  Report Type: 
  Country: SG (occurrence: SG)
  Receive Date: 20120927
  Receipt Date: 20120927
  Transmission Date: 20130627
  Serious: Yes (Hospitalization)
  Sender: FDA-Public Use
  Company Number: SG-B.I. PHARMACEUTICALS,INC./RIDGEFIELD-2012-CS-01371MD

PATIENT
  Age: 63 Year
  Sex: Female

DRUGS (2)
  1. PRADAXA [Suspect]
     Indication: EMBOLISM
     Dosage: 220 mg
     Route: 048
     Dates: start: 201201
  2. PLAVIX [Concomitant]

REACTIONS (1)
  - Myocardial infarction [Unknown]
